FAERS Safety Report 8856265 (Version 1)
Quarter: 2012Q4

REPORT INFORMATION
  Report Type: Spontaneous
  Country: US (occurrence: None)
  Receive Date: 20121023
  Receipt Date: 20121023
  Transmission Date: 20130627
  Serious: Yes (Life-Threatening, Hospitalization)
  Sender: FDA-Public Use
  Company Number: None

PATIENT
  Sex: Male
  Weight: 76.2 kg

DRUGS (2)
  1. MORPHINE SULFATE ER [Suspect]
     Dosage: Morphine Sulfate ER 30mg 2-24 hrs Rx #11815
     Dates: start: 20120812, end: 20121005
  2. MORPHINE SULFATE ER [Suspect]
     Dosage: Morphine Sulfate ER 30mg 2-24 hrs Rx #11815
     Dates: start: 20120812, end: 20121005

REACTIONS (7)
  - Product quality issue [None]
  - Product substitution issue [None]
  - Pain [None]
  - Suicidal ideation [None]
  - Depression [None]
  - Insomnia [None]
  - Drug ineffective [None]
